FAERS Safety Report 23770478 (Version 1)
Quarter: 2024Q2

REPORT INFORMATION
  Report Type: Spontaneous
  Country: SE (occurrence: SE)
  Receive Date: 20240422
  Receipt Date: 20240422
  Transmission Date: 20240716
  Serious: Yes (Hospitalization)
  Sender: FDA-Public Use
  Company Number: None

PATIENT
  Age: 70 Year
  Sex: Male

DRUGS (24)
  1. LOSARTAN POTASSIUM [Suspect]
     Active Substance: LOSARTAN POTASSIUM
     Indication: Cardiac failure
     Dosage: 1X1
     Route: 048
     Dates: start: 20240316, end: 20240322
  2. LOSARTAN POTASSIUM [Suspect]
     Active Substance: LOSARTAN POTASSIUM
     Indication: Hypertension
  3. OZEMPIC [Concomitant]
     Active Substance: SEMAGLUTIDE
     Dosage: 1 MG WEEKLY SUBCUTANEOUS INJECTION
     Route: 058
     Dates: start: 20210728
  4. OCULENTUM SIMPLEX [Concomitant]
     Dosage: 1 STRING OF OINTMENT AT NIGHT FOR 2 WEEKS IN THE LEFT EYE
     Dates: start: 20240315
  5. CLEMASTINE FUMARATE [Concomitant]
     Active Substance: CLEMASTINE FUMARATE
     Dosage: VB
     Dates: start: 20190821
  6. BETOLVEX [CYANOCOBALAMIN ZINC TANNATE] [Concomitant]
     Dosage: 1 TABLET ONE TIME DAILY
     Dates: start: 20190821
  7. METOPROLOL [Concomitant]
     Active Substance: METOPROLOL
     Dosage: 1 PROLONGED-RELEASE TABLET 1 TIME DAILY
     Dates: start: 20240108
  8. FUROSEMIDE [Concomitant]
     Active Substance: FUROSEMIDE
     Dosage: VB
     Dates: start: 20240104
  9. ALLOPURINOL [Concomitant]
     Active Substance: ALLOPURINOL
     Dosage: 1 TABLET 1 TIME DAILY
     Dates: start: 20190912
  10. PREDNISOLONE [Concomitant]
     Active Substance: PREDNISOLONE
     Dosage: 2 TABLETS 1 TIME DAILY
     Dates: start: 20231017
  11. SPIRONOLACTONE [Concomitant]
     Active Substance: SPIRONOLACTONE
  12. ACETAMINOPHEN [Concomitant]
     Active Substance: ACETAMINOPHEN
     Dosage: 2 TABLETS 3 TIMES DAILY
     Dates: start: 20190820
  13. EMOVAT [Concomitant]
     Dosage: VB
     Dates: start: 20210120
  14. ELIQUIS [Concomitant]
     Active Substance: APIXABAN
     Dosage: 1 TABLET 2 TIMES DAILY
     Dates: start: 20190129
  15. DULOXETINE HYDROCHLORIDE [Concomitant]
     Active Substance: DULOXETINE HYDROCHLORIDE
     Dosage: 2 CAPSULE 1 TIME DAILY
     Dates: start: 20210729
  16. KALCIPOS VITAMIN D [Concomitant]
     Dosage: 1 CHEWABLE TABLET 1 PER DAY (500 MG/800 IE)
     Dates: start: 20180913
  17. METFORMIN [Concomitant]
     Active Substance: METFORMIN HYDROCHLORIDE
     Dosage: 1 TABLET FOR BREAKFAST
     Dates: start: 20220314
  18. DAPAGLIFLOZIN [Concomitant]
     Active Substance: DAPAGLIFLOZIN
     Dosage: 1 TABLETT 1 TIME DAILY
     Dates: start: 20230906
  19. IMDUR [Concomitant]
     Active Substance: ISOSORBIDE MONONITRATE
     Dosage: 1 PROLONGED-RELEASE TABLET 1 TIME DAILY
     Dates: start: 20240229
  20. GABAPENTIN RIVOPHARM [Concomitant]
     Dosage: UNK, QID
     Dates: start: 20210728
  21. ROSUVASTATIN [Concomitant]
     Active Substance: ROSUVASTATIN
     Dosage: 1 TABLET 1 TIME DAILY
     Dates: start: 20231017
  22. UREA [Concomitant]
     Active Substance: UREA
     Dosage: 1 APPLICATION 2 TIMES DAILY
     Dates: start: 20180430
  23. OMEPRAZOLE [Concomitant]
     Active Substance: OMEPRAZOLE
     Dosage: 1-2 CAPSULE 1 TIME DAILY
     Dates: start: 20230727
  24. ALENDRONIC ACID [Concomitant]
     Active Substance: ALENDRONIC ACID
     Dosage: ACCORDING TO SCHEDULE
     Dates: start: 20180914

REACTIONS (5)
  - Orthostatic hypotension [Recovering/Resolving]
  - Balance disorder [Recovering/Resolving]
  - Dizziness [Recovering/Resolving]
  - Hypotension [Recovered/Resolved]
  - Fall [Recovering/Resolving]

NARRATIVE: CASE EVENT DATE: 20240318
